FAERS Safety Report 12322586 (Version 2)
Quarter: 2016Q2

REPORT INFORMATION
  Report Type: Spontaneous
  Country: TR (occurrence: TR)
  Receive Date: 20160502
  Receipt Date: 20160531
  Transmission Date: 20160815
  Serious: Yes (Other)
  Sender: FDA-Public Use
  Company Number: TR-JNJFOC-20160423793

PATIENT
  Age: 28 Year
  Sex: Female

DRUGS (2)
  1. VENLAFAXINE [Interacting]
     Active Substance: VENLAFAXINE HYDROCHLORIDE
     Indication: MAJOR DEPRESSION
     Route: 065
  2. RISPERIDONE. [Suspect]
     Active Substance: RISPERIDONE
     Indication: MAJOR DEPRESSION
     Route: 065

REACTIONS (4)
  - Xanthopsia [Recovered/Resolved]
  - Off label use [Unknown]
  - Product use issue [Unknown]
  - Drug interaction [Recovered/Resolved]
